FAERS Safety Report 4526715-2 (Version None)
Quarter: 2004Q4

REPORT INFORMATION
  Report Type: 
  Country: None (occurrence: None)
  Receive Date: 20041214
  Receipt Date: 20041208
  Transmission Date: 20050328
  Serious: Yes (Death)
  Sender: FDA-Public Use
  Company Number: CA-JNJFOC-20040804268

PATIENT
  Sex: Female

DRUGS (8)
  1. DURAGESIC [Suspect]
     Route: 062
  2. PANTOLOL [Concomitant]
     Route: 049
  3. CARDIZEM [Concomitant]
     Route: 049
  4. MOBICOX [Concomitant]
     Route: 049
  5. ATIVAN [Concomitant]
     Route: 049
  6. CLONAZEPAM [Concomitant]
     Route: 049
  7. ASPIRIN [Concomitant]
     Route: 049
  8. ZOLOFT [Concomitant]
     Route: 049

REACTIONS (2)
  - DEATH [None]
  - DRUG TOXICITY [None]
